FAERS Safety Report 18067559 (Version 2)
Quarter: 2021Q1

REPORT INFORMATION
  Report Type: Spontaneous
  Country: ES (occurrence: ES)
  Receive Date: 20200724
  Receipt Date: 20210225
  Transmission Date: 20210419
  Serious: Yes (Other)
  Sender: FDA-Public Use
  Company Number: NVSC2020ES203139

PATIENT
  Sex: Male
  Weight: 74.5 kg

DRUGS (4)
  1. INSULIN GLARGINE [Suspect]
     Active Substance: INSULIN GLARGINE
     Indication: TYPE 2 DIABETES MELLITUS
     Dosage: 18 IU (REDUCED THE DOSE WITH VALUES WITH MEDICAL TARGET)18 IU
     Route: 058
     Dates: start: 2016
  2. SIMVASTATIN. [Suspect]
     Active Substance: SIMVASTATIN
     Indication: PRODUCT USED FOR UNKNOWN INDICATION
     Dosage: UNK
     Route: 048
  3. METFORMIN HYDROCHLORIDE. [Suspect]
     Active Substance: METFORMIN HYDROCHLORIDE
     Indication: TYPE 2 DIABETES MELLITUS
     Dosage: UNK
     Route: 048
  4. HEPARIN [Suspect]
     Active Substance: HEPARIN SODIUM
     Indication: ARTERIAL THROMBOSIS
     Dosage: UNK
     Route: 048

REACTIONS (13)
  - Hypercholesterolaemia [Unknown]
  - Product storage error [Unknown]
  - Product use issue [Unknown]
  - Skin induration [Unknown]
  - Feeling abnormal [Unknown]
  - Hypertriglyceridaemia [Unknown]
  - Arterial thrombosis [Recovering/Resolving]
  - Blood glucose increased [Unknown]
  - Pancreatitis [Recovered/Resolved]
  - Incorrect dose administered [Unknown]
  - Asthenia [Recovering/Resolving]
  - Abdominal discomfort [Unknown]
  - Hypertension [Unknown]

NARRATIVE: CASE EVENT DATE: 2016
